FAERS Safety Report 9153658 (Version 1)
Quarter: 2013Q1

REPORT INFORMATION
  Report Type: Spontaneous
  Country: US (occurrence: None)
  Receive Date: 20130306
  Receipt Date: 20130306
  Transmission Date: 20140127
  Serious: Yes (Other)
  Sender: FDA-Public Use
  Company Number: None

PATIENT
  Age: 45 Year
  Sex: Male
  Weight: 58.97 kg

DRUGS (2)
  1. HYDROXYZINE HCL [Suspect]
     Indication: ANXIETY
     Dosage: 50 MG EVERY 8 HOURRS
     Dates: start: 20130123, end: 20130302
  2. HYDROXYZINE HCL [Suspect]
     Indication: SINUS DISORDER
     Dosage: 50 MG EVERY 8 HOURRS
     Dates: start: 20130123, end: 20130302

REACTIONS (3)
  - Hallucination [None]
  - Heart rate increased [None]
  - Respiratory arrest [None]
